FAERS Safety Report 5585406-X (Version None)
Quarter: 2008Q1

REPORT INFORMATION
  Report Type: 
  Country: None (occurrence: None)
  Receive Date: 20080109
  Receipt Date: 20080103
  Transmission Date: 20080703
  Serious: Yes (Death)
  Sender: FDA-Public Use
  Company Number: US-AVENTIS-200810194GDDC

PATIENT
  Age: 72 Year
  Sex: Female
  Weight: 66.4 kg

DRUGS (3)
  1. GLIMEPIRIDE [Suspect]
     Route: 048
     Dates: start: 20030407, end: 20071221
  2. INHALED HUMAN INSULIN [Suspect]
     Route: 055
     Dates: start: 19980304, end: 20071221
  3. METFORMIN HCL [Suspect]
     Route: 048
     Dates: start: 19991104, end: 20071221

REACTIONS (1)
  - DEATH [None]
